FAERS Safety Report 5170295-8 (Version None)
Quarter: 2007Q1

REPORT INFORMATION
  Report Type: 
  Country: None (occurrence: None)
  Receive Date: 20061204
  Receipt Date: 20061115
  Transmission Date: 20070707
  Serious: Yes (Disabling)
  Sender: FDA-Public Use
  Company Number: 2006AD000087

PATIENT
  Age: 56 Year
  Sex: Male

DRUGS (4)
  1. CEPHALEXIN [Suspect]
     Indication: EOSINOPHILIC PUSTULAR FOLLICULITIS
     Dosage: 500 MG, QID, PO; 500 MG, BID;
     Route: 048
  2. INDOMETHACIN [Suspect]
     Indication: PSORIATIC ARTHROPATHY
     Dosage: 25 MG, QD; PO, 50, MG TID; PO, 50 MG, BID; PO
     Route: 048
  3. SULFASALAZINE [Suspect]
     Indication: PSORIATIC ARTHROPATHY
     Dosage: 500 MG, QD; PO, 3GM; QD; PO, 1 GM, QD; PO
     Route: 048
  4. PREDNISOLONE [Concomitant]

REACTIONS (10)
  - CONDITION AGGRAVATED [None]
  - DIARRHOEA [None]
  - DRUG INEFFECTIVE [None]
  - DRUG INTOLERANCE [None]
  - MELAENA [None]
  - MOBILITY DECREASED [None]
  - NAUSEA [None]
  - PERIPHERAL SENSORIMOTOR NEUROPATHY [None]
  - PRURITUS [None]
  - PSORIATIC ARTHROPATHY [None]
